FAERS Safety Report 21679185 (Version 1)
Quarter: 2022Q4

REPORT INFORMATION
  Report Type: Spontaneous
  Country: US (occurrence: US)
  Receive Date: 20221204
  Receipt Date: 20221204
  Transmission Date: 20230112
  Serious: Yes (Life-Threatening, Hospitalization, Other)
  Sender: FDA-Public Use
  Company Number: US-MLMSERVICE-20221115-3918954-1

PATIENT
  Age: 9 Year
  Sex: Male

DRUGS (2)
  1. PREDNISONE [Suspect]
     Active Substance: PREDNISONE
     Indication: Nephrotic syndrome
     Dosage: 30 MILLIGRAM, EVERY OTHER DAY
     Route: 065
     Dates: start: 201808
  2. MYCOPHENOLATE MOFETIL [Suspect]
     Active Substance: MYCOPHENOLATE MOFETIL
     Indication: Nephrotic syndrome
     Dosage: 200 MILLIGRAM, TWO TIMES A DAY
     Route: 065
     Dates: start: 201803

REACTIONS (1)
  - Meningitis pneumococcal [Recovering/Resolving]

NARRATIVE: CASE EVENT DATE: 20180901
